FAERS Safety Report 7586071-2 (Version None)
Quarter: 2011Q3

REPORT INFORMATION
  Report Type: 
  Country: None (occurrence: None)
  Receive Date: 20110701
  Receipt Date: 20110620
  Transmission Date: 20111222
  Serious: Yes (Hospitalization)
  Sender: FDA-Public Use
  Company Number: CL-MEDIMMUNE-MEDI-0013298

PATIENT
  Sex: Male
  Weight: 1.238 kg

DRUGS (4)
  1. SYNAGIS [Suspect]
     Dates: start: 20110503, end: 20110607
  2. ZINC SULFATE [Concomitant]
     Indication: PROPHYLAXIS
     Route: 048
     Dates: start: 20110310, end: 20110622
  3. FERROUS SULFATE TAB [Concomitant]
     Indication: PROPHYLAXIS
     Route: 048
     Dates: start: 20110310, end: 20110622
  4. ACD VITAMINS [Concomitant]
     Indication: PROPHYLAXIS
     Dosage: 0.68MG/37.5MG/-200UI ONCE A DAY
     Route: 048
     Dates: start: 20110310, end: 20110622

REACTIONS (4)
  - PNEUMONIA VIRAL [None]
  - GASTROOESOPHAGEAL REFLUX DISEASE [None]
  - CYANOSIS [None]
  - VOMITING [None]
